FAERS Safety Report 17783845 (Version 1)
Quarter: 2020Q2

REPORT INFORMATION
  Report Type: Report from Study
  Country: ZA (occurrence: ZA)
  Receive Date: 20200513
  Receipt Date: 20200513
  Transmission Date: 20200714
  Serious: Yes (Other)
  Sender: FDA-Public Use
  Company Number: ZA-ROCHE-2600319

PATIENT
  Age: 60 Year
  Sex: Male

DRUGS (1)
  1. LUCENTIS [Suspect]
     Active Substance: RANIBIZUMAB
     Indication: DIABETIC RETINAL OEDEMA
     Dosage: 0.5 MG, QMO
     Route: 047
     Dates: start: 20191218

REACTIONS (3)
  - Subretinal fluid [Unknown]
  - Retinal oedema [Unknown]
  - Retinal thickening [Unknown]

NARRATIVE: CASE EVENT DATE: 20200225
